FAERS Safety Report 7270849-9 (Version None)
Quarter: 2011Q1

REPORT INFORMATION
  Report Type: 
  Country: None (occurrence: None)
  Receive Date: 20110202
  Receipt Date: 20110131
  Transmission Date: 20110831
  Serious: Yes (Other)
  Sender: FDA-Public Use
  Company Number: FR-ROXANE LABORATORIES, INC.-2011-RO-00126RO

PATIENT
  Age: 71 Year
  Sex: Female

DRUGS (5)
  1. METHOTREXATE [Suspect]
     Route: 030
     Dates: start: 20070401
  2. PREDNISOLONE [Suspect]
     Indication: DERMATOMYOSITIS
     Dates: start: 20010101
  3. METHOTREXATE [Suspect]
     Indication: DERMATOMYOSITIS
     Dates: start: 20030101, end: 20060101
  4. METHOTREXATE [Suspect]
     Route: 048
     Dates: start: 20060101, end: 20070401
  5. IMMUNE GLOBULIN NOS [Suspect]
     Indication: DERMATOMYOSITIS
     Route: 042
     Dates: start: 20060101, end: 20060601

REACTIONS (1)
  - EPSTEIN-BARR VIRUS ASSOCIATED LYMPHOPROLIFERATIVE DISORDER [None]
